FAERS Safety Report 4767450-5 (Version None)
Quarter: 2005Q3

REPORT INFORMATION
  Report Type: 
  Country: None (occurrence: None)
  Receive Date: 20050913
  Receipt Date: 20050629
  Transmission Date: 20060218
  Serious: Yes (Other)
  Sender: FDA-Public Use
  Company Number: US-MERCK-0507USA00199

PATIENT
  Age: 61 Year
  Sex: Female
  Weight: 70 kg

DRUGS (9)
  1. PREMARIN [Concomitant]
     Route: 048
     Dates: start: 19940101
  2. FLONASE [Concomitant]
     Route: 055
  3. ALLEGRA [Concomitant]
     Route: 048
  4. NORITATE [Concomitant]
     Route: 061
  5. VIOXX [Suspect]
     Indication: ARTHRITIS
     Route: 048
     Dates: start: 20040604, end: 20040918
  6. ASPIRIN [Concomitant]
     Route: 048
     Dates: start: 19940101
  7. PLAVIX [Concomitant]
     Route: 048
     Dates: start: 20040901
  8. CRESTOR [Concomitant]
     Route: 048
     Dates: start: 20040901
  9. CRESTOR [Concomitant]
     Route: 048
     Dates: start: 20040901, end: 20050801

REACTIONS (1)
  - CEREBROVASCULAR ACCIDENT [None]
